FAERS Safety Report 6919143-3 (Version None)
Quarter: 2010Q3

REPORT INFORMATION
  Report Type: 
  Country: None (occurrence: None)
  Receive Date: 20100811
  Receipt Date: 20100805
  Transmission Date: 20110219
  Serious: Yes (Death, Hospitalization)
  Sender: FDA-Public Use
  Company Number: US-ROCHE-698725

PATIENT
  Sex: Male
  Weight: 51.5 kg

DRUGS (19)
  1. BEVACIZUMAB [Suspect]
     Route: 042
     Dates: start: 20100218, end: 20100311
  2. PEMETREXED [Suspect]
     Route: 042
     Dates: start: 20100218, end: 20100311
  3. CARBOPLATIN [Suspect]
     Route: 042
     Dates: start: 20100218, end: 20100311
  4. ASPIRIN [Concomitant]
     Dates: start: 20100129
  5. CALCIUM/VITAMIN D [Concomitant]
     Indication: PROPHYLAXIS
  6. CATAPRES [Concomitant]
     Indication: HYPERTENSION
  7. DECADRON [Concomitant]
     Indication: PROPHYLAXIS
     Dates: start: 20100218
  8. LACTULOSE [Concomitant]
     Indication: CONSTIPATION
     Dates: start: 20100107
  9. MEGACE [Concomitant]
     Indication: WEIGHT DECREASED
     Dates: start: 20100213
  10. MULTIVITAMIN NOS [Concomitant]
     Indication: PROPHYLAXIS
     Dates: start: 20100218
  11. ZOFRAN [Concomitant]
     Indication: ANTIEMETIC SUPPORTIVE CARE
     Dates: start: 20100218
  12. ROXICODONE [Concomitant]
     Indication: PAIN
     Dates: start: 20091209
  13. COMPAZINE [Concomitant]
     Indication: ANTIEMETIC SUPPORTIVE CARE
     Dates: start: 20100107
  14. LIDOCAINE [Concomitant]
     Indication: PAIN
     Dates: start: 20091216
  15. PERCOCET [Concomitant]
     Indication: PAIN
     Dates: start: 20100107
  16. FOLIC ACID [Concomitant]
     Dates: start: 20091211
  17. LIDOCAINE [Concomitant]
     Dates: start: 20091216
  18. PERCOCET [Concomitant]
     Dates: start: 20100107
  19. VITAMIN B-12 [Concomitant]
     Dates: start: 20100107

REACTIONS (5)
  - DISEASE PROGRESSION [None]
  - FAILURE TO THRIVE [None]
  - HYPERTENSION [None]
  - HYPONATRAEMIA [None]
  - PNEUMONIA [None]
